FAERS Safety Report 9691292 (Version 1)
Quarter: 2013Q4

REPORT INFORMATION
  Report Type: Spontaneous
  Country: US (occurrence: US)
  Receive Date: 20131115
  Receipt Date: 20131115
  Transmission Date: 20140711
  Serious: Yes (Hospitalization)
  Sender: FDA-Public Use
  Company Number: US-BAYER-2013-137710

PATIENT
  Age: 26 Year
  Sex: Female
  Weight: 53 kg

DRUGS (16)
  1. YAZ [Suspect]
     Route: 048
  2. YASMIN [Suspect]
     Route: 048
  3. ULTRAM [Concomitant]
     Dosage: DAILY DOSE 50 MG
     Dates: start: 20081031
  4. TRAMADOL [Concomitant]
     Dosage: DAILY DOSE 50 MG
     Dates: start: 20081031
  5. NEXIUM [Concomitant]
     Dosage: DAILY DOSE 40 MG
     Dates: start: 20081031
  6. CELEBREX [Concomitant]
     Dosage: DAILY DOSE 200 MG
     Dates: start: 20081031
  7. SKELAXIN [Concomitant]
     Dosage: DAILY DOSE 800 MG
     Dates: start: 20081031
  8. ZOLOFT [Concomitant]
     Indication: AFFECTIVE DISORDER
     Dosage: DAILY DOSE 50 MG
     Dates: start: 20081031
  9. ZOLOFT [Concomitant]
     Indication: FIBROMYALGIA
  10. SERTRALINE [Concomitant]
     Dosage: DAILY DOSE 50 MG
     Dates: start: 20081031
  11. LYRICA [Concomitant]
     Indication: AFFECTIVE DISORDER
     Dosage: DAILY DOSE 75 MG
     Dates: start: 20081031
  12. LYRICA [Concomitant]
     Indication: FIBROMYALGIA
  13. OMEPRAZOLE [Concomitant]
     Dosage: DAILY DOSE 40 MG
     Dates: start: 20081031
  14. NAPROXEN [Concomitant]
     Indication: CHEST PAIN
     Dosage: DAILY DOSE 550 MG
     Dates: start: 20081031
  15. NAPROXEN [Concomitant]
     Indication: FIBROMYALGIA
  16. CYCLOBENZAPRINE [Concomitant]
     Dosage: DAILY DOSE 10 MG
     Dates: start: 20081031

REACTIONS (2)
  - Pulmonary embolism [None]
  - Thrombophlebitis superficial [None]
